FAERS Safety Report 10711289 (Version 2)
Quarter: 2015Q2

REPORT INFORMATION
  Report Type: Spontaneous
  Country: US (occurrence: US)
  Receive Date: 20150114
  Receipt Date: 20150518
  Transmission Date: 20150821
  Serious: Yes (Other)
  Sender: FDA-Public Use
  Company Number: US-PFIZER INC-2015013269

PATIENT
  Age: 14 Year
  Sex: Female
  Weight: 45 kg

DRUGS (2)
  1. CORTEF [Suspect]
     Active Substance: HYDROCORTISONE
     Indication: ADRENOGENITAL SYNDROME
     Dosage: 10 MG (4 AM), 2.5 MG  (12 NOON), 5 MG (8 PM)+ STRESS DOSE
     Dates: start: 20001007
  2. FLORINEF ACETATE [Concomitant]
     Active Substance: FLUDROCORTISONE ACETATE
     Indication: ADRENOGENITAL SYNDROME
     Dosage: 0.01 MG, 1X/DAY

REACTIONS (3)
  - Product taste abnormal [Recovered/Resolved]
  - Adrenocortical insufficiency acute [Recovered/Resolved]
  - Product odour abnormal [Recovered/Resolved]

NARRATIVE: CASE EVENT DATE: 20150102
